FAERS Safety Report 6520167-9 (Version None)
Quarter: 2009Q4

REPORT INFORMATION
  Report Type: 
  Country: None (occurrence: None)
  Receive Date: 20091229
  Receipt Date: 20091221
  Transmission Date: 20100525
  Serious: Yes (Other)
  Sender: FDA-Public Use
  Company Number: US-BAYER-200936982NA

PATIENT
  Age: 60 Year
  Sex: Male

DRUGS (5)
  1. AVELOX [Suspect]
     Indication: GINGIVITIS
     Dosage: TOTAL DAILY DOSE: 400 MG  UNIT DOSE: 400 MG
  2. LISINOPRIL [Concomitant]
     Indication: HYPERTENSION
  3. LASIX [Concomitant]
  4. SIMVASTATIN [Concomitant]
     Indication: HYPERCHOLESTEROLAEMIA
  5. ASPIRIN [Concomitant]

REACTIONS (5)
  - ANAPHYLACTIC REACTION [None]
  - DIZZINESS [None]
  - HYPOTENSION [None]
  - SYNCOPE [None]
  - URTICARIA [None]
